FAERS Safety Report 6528636-2 (Version None)
Quarter: 2010Q1

REPORT INFORMATION
  Report Type: 
  Country: None (occurrence: None)
  Receive Date: 20100106
  Receipt Date: 20091231
  Transmission Date: 20100710
  Serious: Yes (Death)
  Sender: FDA-Public Use
  Company Number: CA-CELGENEUS-028-C5013-09110646

PATIENT
  Sex: Female
  Weight: 44.3 kg

DRUGS (45)
  1. CC-5013 [Suspect]
     Indication: MULTIPLE MYELOMA
     Route: 048
     Dates: start: 20090610, end: 20091104
  2. DEXAMETHASONE [Suspect]
     Indication: MULTIPLE MYELOMA
     Route: 065
     Dates: start: 20090610, end: 20091102
  3. ASPIRIN [Concomitant]
     Indication: PROPHYLAXIS
     Route: 048
     Dates: start: 20040101
  4. ASPIRIN [Concomitant]
  5. PLAVIX [Concomitant]
     Indication: PROPHYLAXIS
     Route: 048
     Dates: start: 20090419, end: 20091105
  6. LIPITOR [Concomitant]
     Route: 048
     Dates: start: 20090420, end: 20091105
  7. PANTOPRAZOLE [Concomitant]
     Indication: PROPHYLAXIS
     Route: 048
     Dates: start: 20090421, end: 20090624
  8. PANTOPRAZOLE [Concomitant]
     Route: 048
     Dates: start: 20090625, end: 20091105
  9. LEVOTHYROXINE SODIUM [Concomitant]
     Indication: HYPOTHYROIDISM
     Route: 048
     Dates: start: 20040101, end: 20091105
  10. ATIVAN [Concomitant]
     Indication: INSOMNIA
     Route: 060
     Dates: start: 20090610, end: 20091104
  11. AMIODARONE HCL [Concomitant]
     Route: 048
     Dates: start: 20090625, end: 20091105
  12. VENTOLIN [Concomitant]
     Dosage: 2 PUFFS
     Route: 048
     Dates: start: 20090713, end: 20091105
  13. CALCITRIOL [Concomitant]
     Indication: OSTEOPOROSIS
     Route: 048
     Dates: start: 20090626, end: 20091105
  14. REPLIVITE [Concomitant]
     Indication: VITAMIN SUPPLEMENTATION
     Route: 048
     Dates: start: 20090626, end: 20091104
  15. NIDODRINE [Concomitant]
     Route: 048
     Dates: start: 20090725, end: 20091104
  16. DOCUSATE SODIUM [Concomitant]
     Indication: CONSTIPATION PROPHYLAXIS
     Route: 048
     Dates: start: 20090725, end: 20091104
  17. ACETAMINOPHEN [Concomitant]
     Indication: PAIN
     Route: 048
     Dates: start: 20090720, end: 20091104
  18. LACTULOSE [Concomitant]
     Indication: CONSTIPATION
     Route: 048
     Dates: start: 20090724, end: 20091104
  19. ARANESP [Concomitant]
     Route: 051
     Dates: start: 20090731, end: 20091030
  20. EPINEPHRINE [Concomitant]
     Indication: MYOCARDIAL INFARCTION
     Dosage: BOLUSES IV PUSH
     Route: 040
     Dates: start: 20091105
  21. EPINEPHRINE [Concomitant]
     Dosage: 5-75 MCG/MIN DRIP
     Route: 051
     Dates: start: 20091105, end: 20091106
  22. HEPARIN [Concomitant]
     Indication: ANTICOAGULANT THERAPY
     Route: 065
  23. INOTROPES [Concomitant]
     Indication: DRUG USE FOR UNKNOWN INDICATION
     Route: 065
  24. VASOPRESSORS [Concomitant]
     Indication: DRUG USE FOR UNKNOWN INDICATION
     Route: 065
  25. ADENOSINE [Concomitant]
     Indication: MYOCARDIAL INFARCTION
     Route: 051
     Dates: start: 20091105
  26. DILTIAZAM [Concomitant]
     Indication: MYOCARDIAL INFARCTION
     Route: 051
     Dates: start: 20091105
  27. NITRO SPRAY [Concomitant]
     Indication: MYOCARDIAL INFARCTION
     Route: 060
     Dates: start: 20091105
  28. LEVOFLOXACIN [Concomitant]
     Indication: MYOCARDIAL INFARCTION
     Route: 051
     Dates: start: 20091105
  29. LEVOFLOXACIN [Concomitant]
     Indication: INFECTION PROPHYLAXIS
  30. LASIX [Concomitant]
     Indication: MYOCARDIAL INFARCTION
     Route: 051
     Dates: start: 20091105
  31. NITROGLYCERIN [Concomitant]
     Indication: MYOCARDIAL INFARCTION
     Dosage: 10-20 MCG/MIN
     Route: 051
     Dates: start: 20091105
  32. MIDAZOLAM HCL [Concomitant]
     Indication: SEDATION
     Route: 051
     Dates: start: 20091105
  33. MIDAZOLAM HCL [Concomitant]
  34. PROPOFOL [Concomitant]
     Indication: MYOCARDIAL INFARCTION
     Route: 051
     Dates: start: 20091105
  35. PROPOFOL [Concomitant]
     Indication: SEDATION
  36. PHENYLEPHRINE [Concomitant]
     Indication: MYOCARDIAL INFARCTION
     Route: 051
     Dates: start: 20091105
  37. PHENYLEPHRINE [Concomitant]
     Indication: SEDATION
  38. FENTANYL-100 [Concomitant]
     Indication: MYOCARDIAL INFARCTION
     Dosage: 50-100 MCG
     Route: 051
     Dates: start: 20091105
  39. FENTANYL-100 [Concomitant]
     Indication: SEDATION
  40. CALCIUM CARBONATE [Concomitant]
     Indication: MYOCARDIAL INFARCTION
     Route: 048
     Dates: start: 20091105
  41. PIPERACILLIN AND TAZOBACTAM [Concomitant]
     Route: 051
     Dates: start: 20091105
  42. CHLORHEXIDINE GLUCONATE [Concomitant]
     Dosage: 12%
     Route: 048
     Dates: start: 20091105
  43. VERSED [Concomitant]
     Indication: MYOCARDIAL INFARCTION
     Route: 051
     Dates: start: 20091105
  44. MORPHINE [Concomitant]
     Indication: MYOCARDIAL INFARCTION
     Dosage: 3-6MG
     Route: 051
     Dates: start: 20091105, end: 20091106
  45. MILZINONE [Concomitant]
     Indication: MYOCARDIAL INFARCTION
     Dosage: 0.125MCG/KG/MIN
     Route: 051
     Dates: start: 20091105

REACTIONS (1)
  - MYOCARDIAL INFARCTION [None]
